FAERS Safety Report 5689382-0 (Version None)
Quarter: 2008Q1

REPORT INFORMATION
  Report Type: 
  Country: None (occurrence: None)
  Receive Date: 20080331
  Receipt Date: 20080319
  Transmission Date: 20080703
  Serious: Yes (Hospitalization, Other)
  Sender: FDA-Public Use
  Company Number: US-PFIZER INC-2008002136

PATIENT
  Age: 57 Year
  Sex: Female

DRUGS (15)
  1. SUTENT [Suspect]
     Indication: METASTATIC RENAL CELL CARCINOMA
     Dosage: DAILY DOSE:50MG
  2. SUTENT [Suspect]
     Dosage: DAILY DOSE:37.5MG
  3. AVASTIN [Suspect]
     Indication: METASTATIC RENAL CELL CARCINOMA
     Dosage: DAILY DOSE:10MG/KG
  4. LORAZEPAM [Concomitant]
  5. ASCORBIC ACID [Concomitant]
  6. VITAMIN CAP [Concomitant]
  7. CALCIUM [Concomitant]
  8. BISOPROLOL FUMARATE AND HYDROCHLOROTHIAZIDE [Concomitant]
  9. FEXOFENADINE [Concomitant]
  10. ESOMEPRAZOLE MAGNESIUM [Concomitant]
  11. SULAR [Concomitant]
  12. LEVOTHYROXINE SODIUM [Concomitant]
  13. VICODIN [Concomitant]
  14. ALLOPURINOL [Concomitant]
  15. ACETAMINOPHEN [Concomitant]

REACTIONS (1)
  - MICROANGIOPATHIC HAEMOLYTIC ANAEMIA [None]
